FAERS Safety Report 12568414 (Version 1)
Quarter: 2016Q3

REPORT INFORMATION
  Report Type: Spontaneous
  Country: US (occurrence: US)
  Receive Date: 20160718
  Receipt Date: 20160718
  Transmission Date: 20161109
  Serious: No
  Sender: FDA-Public Use
  Company Number: US-ASTRAZENECA-2016SE74715

PATIENT
  Age: 83 Year
  Sex: Male

DRUGS (13)
  1. ENZALUTAMIDE [Suspect]
     Active Substance: ENZALUTAMIDE
     Indication: PROSTATE CANCER
     Dosage: 160 MG,ONCE DAILY
     Route: 048
     Dates: start: 20160525
  2. PRED FORTE [Concomitant]
     Active Substance: PREDNISOLONE ACETATE
  3. TIMOLOL. [Concomitant]
     Active Substance: TIMOLOL
  4. PRILOSEC [Suspect]
     Active Substance: OMEPRAZOLE MAGNESIUM
     Indication: PRODUCT USED FOR UNKNOWN INDICATION
     Route: 048
  5. TRILIPIX [Concomitant]
     Active Substance: FENOFIBRIC ACID
  6. RESTASIS [Concomitant]
     Active Substance: CYCLOSPORINE
  7. CRESTOR [Concomitant]
     Active Substance: ROSUVASTATIN CALCIUM
  8. DOXYCYCLINE. [Concomitant]
     Active Substance: DOXYCYCLINE
  9. ALPHAGAN P [Concomitant]
     Active Substance: BRIMONIDINE TARTRATE
  10. ESGIC [Concomitant]
     Active Substance: ACETAMINOPHEN\BUTALBITAL\CAFFEINE
  11. ZYTIGA [Concomitant]
     Active Substance: ABIRATERONE ACETATE
  12. BENICAR [Concomitant]
     Active Substance: OLMESARTAN MEDOXOMIL
  13. TRAVATAN Z [Concomitant]
     Active Substance: TRAVOPROST

REACTIONS (3)
  - Decreased appetite [Unknown]
  - Drug interaction [Unknown]
  - Fatigue [Unknown]
